FAERS Safety Report 9498956 (Version 2)
Quarter: 2014Q2

REPORT INFORMATION
  Report Type: Spontaneous
  Country: NL (occurrence: NL)
  Receive Date: 20130904
  Receipt Date: 20140502
  Transmission Date: 20141212
  Serious: Yes (Death, Hospitalization)
  Sender: FDA-Public Use
  Company Number: NL-ELI_LILLY_AND_COMPANY-NL201309000425

PATIENT
  Age: 68 Year
  Sex: Male

DRUGS (2)
  1. PEMETREXED [Suspect]
     Indication: LUNG NEOPLASM MALIGNANT
     Dosage: UNK
     Route: 042
     Dates: start: 20121211, end: 20121211
  2. CISPLATINE [Concomitant]
     Route: 042

REACTIONS (17)
  - Sepsis [Fatal]
  - Neutropenia [Fatal]
  - Systemic candida [Fatal]
  - Atelectasis [Fatal]
  - Renal impairment [Fatal]
  - Critical illness polyneuropathy [Fatal]
  - Ileus paralytic [Fatal]
  - Atrial fibrillation [Fatal]
  - Bronchopulmonary aspergillosis [Fatal]
  - Gastrointestinal haemorrhage [Fatal]
  - Diarrhoea [Unknown]
  - Vomiting [Unknown]
  - White blood cell count decreased [Unknown]
  - Pyrexia [Unknown]
  - Malnutrition [Unknown]
  - Multi-organ failure [Unknown]
  - Duodenal ulcer haemorrhage [Unknown]
